FAERS Safety Report 6006288-8 (Version None)
Quarter: 2008Q4

REPORT INFORMATION
  Report Type: 
  Country: None (occurrence: None)
  Receive Date: 20081217
  Receipt Date: 20081216
  Transmission Date: 20090506
  Serious: Yes (Other)
  Sender: FDA-Public Use
  Company Number: A0760551A

PATIENT
  Age: 63 Year
  Sex: Female

DRUGS (1)
  1. NICORETTE WHITE ICE OTC 2MG [Suspect]
     Indication: SMOKING CESSATION THERAPY
     Dosage: 2MG FIVE TIMES PER DAY
     Route: 002
     Dates: start: 20081204

REACTIONS (5)
  - ANGINA PECTORIS [None]
  - CHEST PAIN [None]
  - CONFUSIONAL STATE [None]
  - DIZZINESS [None]
  - INTENTIONAL DRUG MISUSE [None]
